FAERS Safety Report 10926123 (Version 1)
Quarter: 2015Q1

REPORT INFORMATION
  Report Type: Spontaneous
  Country: US (occurrence: None)
  Receive Date: 20150316
  Receipt Date: 20150316
  Transmission Date: 20150721
  Serious: No
  Sender: FDA-Public Use
  Company Number: None

PATIENT
  Age: 54 Year
  Sex: Male
  Weight: 92.99 kg

DRUGS (1)
  1. FLUOXETINE / GENERIC PROZAC 10 MG CAPSULES PLIVA KRAKOW PHARMACEUTICAL [Suspect]
     Active Substance: FLUOXETINE HYDROCHLORIDE
     Indication: DEPRESSION
     Dosage: THREE 10 MG CAPSULES ONCE DAILY TAKEN BY MOUTH
     Route: 048
     Dates: start: 20150129, end: 20150312

REACTIONS (4)
  - Product odour abnormal [None]
  - Drug effect decreased [None]
  - Product quality issue [None]
  - Product contamination chemical [None]

NARRATIVE: CASE EVENT DATE: 20150312
